FAERS Safety Report 25947467 (Version 2)
Quarter: 2025Q4

REPORT INFORMATION
  Report Type: Report from Study
  Country: EU (occurrence: EU)
  Receive Date: 20251022
  Receipt Date: 20251116
  Transmission Date: 20260118
  Serious: Yes (Hospitalization)
  Sender: ABBVIE
  Company Number: EU-ABBVIE-6359269

PATIENT
  Age: 77 Year
  Sex: Male

DRUGS (3)
  1. CARBIDOPA\LEVODOPA [Suspect]
     Active Substance: CARBIDOPA\LEVODOPA
     Indication: Parkinson^s disease
     Dosage: MD: 4.5ML CRT: 2.6ML/H ED: 2.0ML
     Route: 050
     Dates: start: 20250702, end: 20250702
  2. CARBIDOPA\LEVODOPA [Suspect]
     Active Substance: CARBIDOPA\LEVODOPA
     Dosage: MD: 4.0 ML CRN: 1.5 ML/H CRT: 3.6 ML/H ED: 4.0 ML
     Route: 050
     Dates: start: 20250703
  3. CARBIDOPA\LEVODOPA [Suspect]
     Active Substance: CARBIDOPA\LEVODOPA
     Dosage: MD: 4.0 ML CRT: 3.6ML/H CRN: 1.5ML/H ED: 4.0ML
     Route: 050
     Dates: start: 20250702, end: 20250703

REACTIONS (8)
  - Urinary tract infection [Unknown]
  - Decubitus ulcer [Not Recovered/Not Resolved]
  - Malaise [Recovered/Resolved]
  - Device dislocation [Recovered/Resolved]
  - Bedridden [Recovered/Resolved]
  - Gait inability [Recovering/Resolving]
  - Incorrect route of product administration [Not Recovered/Not Resolved]
  - Device issue [Unknown]

NARRATIVE: CASE EVENT DATE: 20250101
